FAERS Safety Report 16074168 (Version 3)
Quarter: 2019Q2

REPORT INFORMATION
  Report Type: Spontaneous
  Country: CA (occurrence: CA)
  Receive Date: 20190314
  Receipt Date: 20190502
  Transmission Date: 20190711
  Serious: Yes (Death, Other)
  Sender: FDA-Public Use
  Company Number: CA-PFIZER INC-2017243169

PATIENT
  Age: 58 Year
  Sex: Female

DRUGS (12)
  1. LEVOTHYROXIN [Concomitant]
     Active Substance: LEVOTHYROXINE
     Dosage: UNK
  2. FRAGMIN [Concomitant]
     Active Substance: DALTEPARIN SODIUM
     Dosage: UNK
  3. MORPHINE [Concomitant]
     Active Substance: MORPHINE
     Dosage: UNK
  4. SEROQUEL [Concomitant]
     Active Substance: QUETIAPINE FUMARATE
     Dosage: UNK
  5. CALCIUM + VIT D [Concomitant]
     Active Substance: CALCIUM\VITAMIN D
     Dosage: UNK
  6. DECADRON [Concomitant]
     Active Substance: DEXAMETHASONE
     Dosage: UNK
  7. CRESTOR [Concomitant]
     Active Substance: ROSUVASTATIN CALCIUM
     Dosage: UNK
  8. IBRANCE [Suspect]
     Active Substance: PALBOCICLIB
     Indication: BREAST CANCER METASTATIC
     Dosage: 125 MG, CYCLIC(125 MG DIE FOR 21 DAYS, FOLLOWED BY 7 DAYS OFF  )
     Route: 048
     Dates: start: 20170601, end: 201903
  9. FASLODEX [Concomitant]
     Active Substance: FULVESTRANT
     Dosage: UNK
     Dates: start: 201707, end: 201802
  10. TAXOL [Concomitant]
     Active Substance: PACLITAXEL
     Dosage: UNK
  11. HYDROCHLOROTHIAZIDE. [Concomitant]
     Active Substance: HYDROCHLOROTHIAZIDE
     Dosage: UNK
  12. O2 [OXYGEN] [Concomitant]
     Dosage: UNK

REACTIONS (30)
  - Ascites [Unknown]
  - Neutropenia [Unknown]
  - Pneumonia [Unknown]
  - Somnolence [Unknown]
  - General physical health deterioration [Unknown]
  - Neurofibromatosis [Unknown]
  - Gastrointestinal obstruction [Unknown]
  - Constipation [Unknown]
  - Thrombocytosis [Unknown]
  - Sepsis [Fatal]
  - Lung disorder [Unknown]
  - Neutrophil count increased [Unknown]
  - Condition aggravated [Unknown]
  - Portal vein thrombosis [Unknown]
  - Fatigue [Unknown]
  - Abdominal distension [Unknown]
  - Abdominal pain upper [Unknown]
  - Abdominal pain [Unknown]
  - Pneumothorax [Fatal]
  - Confusional state [Unknown]
  - Pulse pressure abnormal [Unknown]
  - Nausea [Unknown]
  - Hepatic failure [Unknown]
  - Malaise [Unknown]
  - Neoplasm progression [Unknown]
  - Gastric dilatation [Unknown]
  - Dyspnoea [Unknown]
  - Blood creatinine increased [Unknown]
  - Vomiting [Unknown]
  - Asthenia [Unknown]

NARRATIVE: CASE EVENT DATE: 20180223
